FAERS Safety Report 9886830 (Version 1)
Quarter: 2014Q1

REPORT INFORMATION
  Report Type: Not Available
  Country: CH (occurrence: CH)
  Receive Date: 20140210
  Receipt Date: 20140210
  Transmission Date: 20141002
  Serious: Yes (Other)
  Sender: FDA-Public Use
  Company Number: CH-RB-063148-14

PATIENT
  Age: 24 Year
  Sex: Female

DRUGS (2)
  1. TEMGESIC [Suspect]
     Indication: ENDOMETRIOSIS
     Route: 065
     Dates: start: 20131010, end: 201401
  2. TEMESTA [Suspect]
     Indication: ENDOMETRIOSIS
     Route: 065
     Dates: end: 201401

REACTIONS (2)
  - Maternal exposure during pregnancy [Unknown]
  - Abortion [Recovered/Resolved]
